FAERS Safety Report 7466382-1 (Version None)
Quarter: 2011Q1

REPORT INFORMATION
  Report Type: 
  Country: None (occurrence: None)
  Receive Date: 20110302
  Receipt Date: 20100921
  Transmission Date: 20110831
  Serious: Yes (Death, Other)
  Sender: FDA-Public Use
  Company Number: 163-21880-10070914

PATIENT
  Age: 63 Year
  Sex: Male

DRUGS (4)
  1. INSULIN (INSULIN) [Concomitant]
  2. FINASTERIDE [Concomitant]
  3. TRAZODONE (TRAZODONE) [Concomitant]
  4. REVLIMID [Suspect]
     Indication: LYMPHOMA
     Dosage: 12.5 MG, 1 IN 1 D, PO
     Route: 048
     Dates: start: 20090821, end: 20090909

REACTIONS (3)
  - INFECTION [None]
  - BONE MARROW FAILURE [None]
  - MYELODYSPLASTIC SYNDROME [None]
